FAERS Safety Report 19864453 (Version 2)
Quarter: 2021Q4

REPORT INFORMATION
  Report Type: Other
  Country: US (occurrence: US)
  Receive Date: 20210921
  Receipt Date: 20211221
  Transmission Date: 20220303
  Serious: No
  Sender: FDA-Public Use
  Company Number: US-ACORDA-ACO_169828_2021

PATIENT
  Sex: Female

DRUGS (3)
  1. INBRIJA [Suspect]
     Active Substance: LEVODOPA
     Indication: Parkinson^s disease
     Dosage: 42 MILLIGRAM, 2 CAPSULES, FIVE TIMES DAILY AS NEEDED, MAX 5 DOSES / DAY
     Dates: start: 20201029
  2. INBRIJA [Suspect]
     Active Substance: LEVODOPA
     Indication: On and off phenomenon
  3. GOCOVRI [Suspect]
     Active Substance: AMANTADINE
     Indication: Dyskinesia
     Dosage: 137 MILLIGRAM, QD
     Route: 048

REACTIONS (9)
  - Freezing phenomenon [Unknown]
  - Tremor [Unknown]
  - Asthenia [Unknown]
  - Product packaging difficult to open [Unknown]
  - Device difficult to use [Unknown]
  - Dry mouth [Not Recovered/Not Resolved]
  - Nasal mucosal discolouration [Not Recovered/Not Resolved]
  - Coating in mouth [Not Recovered/Not Resolved]
  - Parkinson^s disease [Not Recovered/Not Resolved]
